FAERS Safety Report 5341339-5 (Version None)
Quarter: 2007Q2

REPORT INFORMATION
  Report Type: 
  Country: None (occurrence: None)
  Receive Date: 20070530
  Receipt Date: 20070518
  Transmission Date: 20071010
  Serious: Yes (Hospitalization)
  Sender: FDA-Public Use
  Company Number: 163-20785-07050490

PATIENT
  Age: 22 Year
  Sex: Male

DRUGS (1)
  1. THALOMID [Suspect]
     Indication: HODGKIN'S DISEASE
     Dosage: 100 MG, 1 IN 1 D, ORAL
     Route: 048
     Dates: start: 20070115, end: 20070301

REACTIONS (3)
  - LUNG NEOPLASM MALIGNANT [None]
  - PURULENCE [None]
  - TRACHEOBRONCHITIS [None]
